FAERS Safety Report 15306962 (Version 1)
Quarter: 2018Q3

REPORT INFORMATION
  Report Type: Spontaneous
  Country: GB (occurrence: GB)
  Receive Date: 20180822
  Receipt Date: 20180822
  Transmission Date: 20181010
  Serious: Yes (Life-Threatening, Hospitalization, Other)
  Sender: FDA-Public Use
  Company Number: GB-ALEMBIC PHARMACUETICALS LIMITED-2018SCAL000639

PATIENT

DRUGS (1)
  1. QUETIAPINE FUMARATE. [Suspect]
     Active Substance: QUETIAPINE FUMARATE
     Indication: PRODUCT USED FOR UNKNOWN INDICATION
     Dosage: 16 GRAM

REACTIONS (7)
  - Toxicity to various agents [Recovering/Resolving]
  - Tachyarrhythmia [Recovering/Resolving]
  - Coma scale abnormal [Recovering/Resolving]
  - Generalised tonic-clonic seizure [Recovering/Resolving]
  - Torsade de pointes [Recovering/Resolving]
  - Overdose [Recovering/Resolving]
  - Hypotension [Recovering/Resolving]
